FAERS Safety Report 26158103 (Version 1)
Quarter: 2025Q4

REPORT INFORMATION
  Report Type: Spontaneous
  Country: US (occurrence: None)
  Receive Date: 20251215
  Receipt Date: 20251215
  Transmission Date: 20260118
  Serious: No
  Sender: FDA-CTU
  Company Number: None

PATIENT
  Age: 76 Year
  Sex: Male
  Weight: 74 kg

DRUGS (1)
  1. LECANEMAB-IRMB [Suspect]
     Active Substance: LECANEMAB-IRMB
     Indication: Dementia Alzheimer^s type
     Dosage: 730 MG  EVERY 2 WEEKS   IV
     Route: 042
     Dates: start: 20251110

REACTIONS (8)
  - Arthralgia [None]
  - Headache [None]
  - Myalgia [None]
  - Sedation [None]
  - Influenza like illness [None]
  - Fall [None]
  - Balance disorder [None]
  - Infusion related reaction [None]

NARRATIVE: CASE EVENT DATE: 20251110
